FAERS Safety Report 21060468 (Version 2)
Quarter: 2022Q3

REPORT INFORMATION
  Report Type: Spontaneous
  Country: US (occurrence: US)
  Receive Date: 20220708
  Receipt Date: 20220721
  Transmission Date: 20221027
  Serious: No
  Sender: FDA-Public Use
  Company Number: US-SA-SAC20220706001718

PATIENT
  Sex: Male

DRUGS (1)
  1. DUPIXENT [Suspect]
     Active Substance: DUPILUMAB
     Indication: Dermatitis atopic
     Dosage: 200 MG, QOW
     Route: 058
     Dates: start: 20211214

REACTIONS (4)
  - Sleep disorder [Unknown]
  - Discomfort [Unknown]
  - Dermatitis atopic [Unknown]
  - Rash [Unknown]
